FAERS Safety Report 6998485-X (Version None)
Quarter: 2010Q3

REPORT INFORMATION
  Report Type: 
  Country: None (occurrence: None)
  Receive Date: 20100920
  Receipt Date: 20100408
  Transmission Date: 20110219
  Serious: No
  Sender: FDA-Public Use
  Company Number: US-ASTRAZENECA-2007UW05561

PATIENT
  Age: 30 Year
  Sex: Male
  Weight: 121.1 kg

DRUGS (23)
  1. SEROQUEL [Suspect]
     Indication: BIPOLAR DISORDER
     Dosage: 25MG-150MG
     Route: 048
     Dates: start: 20001012
  2. SEROQUEL [Suspect]
     Indication: INSOMNIA
     Dosage: 25MG-150MG
     Route: 048
     Dates: start: 20001012
  3. SEROQUEL [Suspect]
     Route: 048
     Dates: start: 20001020, end: 20060501
  4. SEROQUEL [Suspect]
     Route: 048
     Dates: start: 20001020, end: 20060501
  5. SEROQUEL [Suspect]
     Route: 048
     Dates: end: 20060101
  6. SEROQUEL [Suspect]
     Route: 048
     Dates: end: 20060101
  7. ELAVIL [Concomitant]
  8. PAXIL [Concomitant]
     Dates: start: 20000301
  9. PROZAC [Concomitant]
  10. EFFEXOR [Concomitant]
     Dosage: 50 TO 75 MG
     Dates: start: 19990616, end: 20000821
  11. WELLBUTRIN [Concomitant]
  12. LITHIUM CARBONATE [Concomitant]
     Dates: start: 20050801, end: 20060501
  13. NEURONTINE [Concomitant]
  14. TRAZODONE HCL [Concomitant]
  15. ESKALITH [Concomitant]
  16. ZOLOFT [Concomitant]
  17. HYDROCODONE [Concomitant]
  18. PROMETHAZINE [Concomitant]
  19. NAPROXEN [Concomitant]
  20. AVELOX [Concomitant]
  21. DIAZEPAM [Concomitant]
  22. LEVAQUIN [Concomitant]
  23. REMERON [Concomitant]

REACTIONS (3)
  - GASTROINTESTINAL DISORDER [None]
  - OBESITY [None]
  - TYPE 2 DIABETES MELLITUS [None]
